FAERS Safety Report 8999768 (Version 1)
Quarter: 2013Q1

REPORT INFORMATION
  Report Type: Spontaneous
  Country: US (occurrence: US)
  Receive Date: 20130102
  Receipt Date: 20130102
  Transmission Date: 20140127
  Serious: Yes (Hospitalization)
  Sender: FDA-Public Use
  Company Number: US-PFIZER INC-2012331552

PATIENT
  Age: 74 Year
  Sex: Female
  Weight: 58.96 kg

DRUGS (3)
  1. DETROL LA [Suspect]
     Indication: BLADDER DISORDER
     Dosage: UNK
     Dates: start: 2007
  2. SIMVASTATIN [Concomitant]
     Indication: BLOOD CHOLESTEROL ABNORMAL
     Dosage: 20 MG, DAILY
  3. TEMAZEPAM [Concomitant]
     Indication: SLEEP DISORDER
     Dosage: 40 MG, DAILY

REACTIONS (2)
  - Bladder prolapse [Unknown]
  - Drug ineffective [Unknown]
